FAERS Safety Report 24404089 (Version 1)
Quarter: 2024Q4

REPORT INFORMATION
  Report Type: Spontaneous
  Country: US (occurrence: None)
  Receive Date: 20241004
  Receipt Date: 20241004
  Transmission Date: 20250115
  Serious: Yes (Hospitalization)
  Sender: Public
  Company Number: None

PATIENT
  Sex: Female

DRUGS (9)
  1. AMBRISENTAN [Suspect]
     Active Substance: AMBRISENTAN
     Indication: Pulmonary arterial hypertension
     Dosage: FREQUENCY : DAILY;?
     Route: 048
     Dates: start: 202311
  2. NORMAL SALINE FLUSH (5ML) [Concomitant]
  3. PUMP REMUNITY STARTER KIT [Concomitant]
  4. C-FORMULATION D W/CLD NI 0.2% [Concomitant]
  5. REMUNITY CART W/FILL AID [Concomitant]
  6. PUMP CADD LEGACY [Concomitant]
  7. REMODULIN MDV [Concomitant]
  8. LIDOCAINE/PRILOCAINE CRM [Concomitant]
  9. SILDENAFIL CITRATE [Concomitant]

REACTIONS (1)
  - Pulmonary arterial hypertension [None]
